FAERS Safety Report 11229282 (Version 1)
Quarter: 2015Q2

REPORT INFORMATION
  Report Type: Spontaneous
  Country: IT (occurrence: IT)
  Receive Date: 20150630
  Receipt Date: 20150630
  Transmission Date: 20150821
  Serious: Yes (Other)
  Sender: FDA-Public Use
  Company Number: IT-FRI-1000077798

PATIENT
  Age: 45 Year
  Sex: Female

DRUGS (4)
  1. CIPROXIN [Suspect]
     Active Substance: CIPROFLOXACIN
     Indication: URINARY TRACT INFECTION
     Dosage: 1 DF
     Route: 048
     Dates: start: 20150430, end: 20150502
  2. MONUROL [Suspect]
     Active Substance: FOSFOMYCIN TROMETHAMINE
     Indication: URINARY TRACT INFECTION
     Dosage: 1 DF
     Route: 065
     Dates: start: 20150501, end: 20150501
  3. DIFLUCAN [Concomitant]
     Active Substance: FLUCONAZOLE
  4. PEVARYL [Concomitant]
     Active Substance: ECONAZOLE NITRATE
     Route: 067

REACTIONS (3)
  - Face oedema [Recovering/Resolving]
  - Erythema [Recovering/Resolving]
  - Pruritus [Recovering/Resolving]

NARRATIVE: CASE EVENT DATE: 20150502
